FAERS Safety Report 11104028 (Version 1)
Quarter: 2015Q2

REPORT INFORMATION
  Report Type: Spontaneous
  Country: US (occurrence: None)
  Receive Date: 20150508
  Receipt Date: 20150508
  Transmission Date: 20150821
  Serious: Yes (Other)
  Sender: FDA-Public Use
  Company Number: None

PATIENT
  Age: 48 Year
  Sex: Male
  Weight: 77.11 kg

DRUGS (12)
  1. FENTANYL. [Concomitant]
     Active Substance: FENTANYL
  2. HYDROCODONE [Concomitant]
     Active Substance: HYDROCODONE
  3. LEVOTHYROXIN [Concomitant]
     Active Substance: LEVOTHYROXINE
  4. NEXIUM [Concomitant]
     Active Substance: ESOMEPRAZOLE MAGNESIUM
  5. REGLAN [Concomitant]
     Active Substance: METOCLOPRAMIDE HYDROCHLORIDE
  6. AMITRIPTYLINE [Concomitant]
     Active Substance: AMITRIPTYLINE
  7. LINZESS [Suspect]
     Active Substance: LINACLOTIDE
     Indication: IRRITABLE BOWEL SYNDROME
     Route: 048
  8. OXYBUTANIN [Concomitant]
  9. SIMVASTIN [Concomitant]
     Active Substance: SIMVASTATIN
  10. WELLBUTRIN [Concomitant]
     Active Substance: BUPROPION HYDROCHLORIDE
  11. MIDODRINE [Concomitant]
     Active Substance: MIDODRINE
  12. COREG [Concomitant]
     Active Substance: CARVEDILOL

REACTIONS (2)
  - Diarrhoea [None]
  - Incontinence [None]

NARRATIVE: CASE EVENT DATE: 20150506
